FAERS Safety Report 15034265 (Version 1)
Quarter: 2018Q2

REPORT INFORMATION
  Report Type: Spontaneous
  Country: US (occurrence: US)
  Receive Date: 20180620
  Receipt Date: 20180620
  Transmission Date: 20180711
  Serious: Yes (Life-Threatening, Hospitalization, Other)
  Sender: FDA-Public Use
  Company Number: US-ALEMBIC PHARMACUETICALS LIMITED-2018SCAL000432

PATIENT

DRUGS (2)
  1. DULOXETINE DR CAPSULE [Suspect]
     Active Substance: DULOXETINE HYDROCHLORIDE
     Indication: NEURALGIA
     Dosage: UNK
  2. AMITRIPTYLINE [Suspect]
     Active Substance: AMITRIPTYLINE
     Indication: NEURALGIA
     Dosage: UNK

REACTIONS (7)
  - Dyspnoea exertional [Unknown]
  - Respiratory failure [Unknown]
  - Tachycardia [Unknown]
  - Productive cough [Unknown]
  - Pulmonary eosinophilia [Unknown]
  - Oxygen saturation decreased [Recovering/Resolving]
  - Rales [Unknown]
